FAERS Safety Report 5872243-1 (Version None)
Quarter: 2008Q3

REPORT INFORMATION
  Report Type: 
  Country: None (occurrence: None)
  Receive Date: 20080905
  Receipt Date: 20080825
  Transmission Date: 20090109
  Serious: Yes (Other)
  Sender: FDA-Public Use
  Company Number: MX-ROCHE-583036

PATIENT
  Sex: Female
  Weight: 81 kg

DRUGS (3)
  1. XENICAL [Suspect]
     Indication: OBESITY
     Route: 048
     Dates: start: 20080625, end: 20080806
  2. XENICAL [Suspect]
     Route: 048
     Dates: start: 20080820, end: 20080822
  3. ARCOXIA [Concomitant]
     Route: 048
     Dates: start: 20080625, end: 20080806

REACTIONS (1)
  - PETECHIAE [None]
